FAERS Safety Report 7276575-4 (Version None)
Quarter: 2011Q1

REPORT INFORMATION
  Report Type: 
  Country: None (occurrence: None)
  Receive Date: 20110204
  Receipt Date: 20110128
  Transmission Date: 20110831
  Serious: Yes (Hospitalization)
  Sender: FDA-Public Use
  Company Number: US-CEPHALON-2011000455

PATIENT
  Age: 49 Year
  Sex: Female
  Weight: 74 kg

DRUGS (8)
  1. AMRIX [Suspect]
     Route: 048
  2. PHENERGAN HCL [Suspect]
  3. LOTREL [Suspect]
     Dates: start: 20040101
  4. LEXAPRO [Suspect]
     Dates: start: 20080101, end: 20100515
  5. TANEZUMAB [Suspect]
     Dates: start: 20091201, end: 20100518
  6. NORTRIPTYLINE [Suspect]
  7. FIORICET [Suspect]
     Dates: start: 20091201, end: 20100518
  8. THERA-GESIC [Concomitant]
     Dates: start: 20100414

REACTIONS (13)
  - HYPOXIA [None]
  - ARRHYTHMIA [None]
  - MULTIPLE DRUG OVERDOSE [None]
  - HYPOTENSION [None]
  - CONFUSIONAL STATE [None]
  - RHABDOMYOLYSIS [None]
  - VOMITING [None]
  - SUICIDAL IDEATION [None]
  - RESPIRATORY FAILURE [None]
  - CARDIAC ARREST [None]
  - CONVULSION [None]
  - HYPOVENTILATION [None]
  - COMA [None]
